FAERS Safety Report 7753226-3 (Version None)
Quarter: 2011Q3

REPORT INFORMATION
  Report Type: 
  Country: None (occurrence: None)
  Receive Date: 20110915
  Receipt Date: 20110907
  Transmission Date: 20111222
  Serious: Yes (Other)
  Sender: FDA-Public Use
  Company Number: PHHY2011ZA79948

PATIENT
  Age: 10 Year
  Sex: Male

DRUGS (1)
  1. RITALIN LA [Suspect]
     Dosage: UNK UKN, UNK
     Dates: end: 20110501

REACTIONS (3)
  - CARDIAC DISORDER [None]
  - SUPRAVENTRICULAR TACHYCARDIA [None]
  - FATIGUE [None]
